FAERS Safety Report 23736162 (Version 1)
Quarter: 2024Q2

REPORT INFORMATION
  Report Type: Spontaneous
  Country: US (occurrence: None)
  Receive Date: 20240411
  Receipt Date: 20240411
  Transmission Date: 20240716
  Serious: No
  Sender: FDA-Public Use
  Company Number: None

PATIENT
  Age: 41 Year
  Sex: Female
  Weight: 69.75 kg

DRUGS (2)
  1. WELLBUTRIN [Suspect]
     Active Substance: BUPROPION HYDROCHLORIDE
     Indication: Attention deficit hyperactivity disorder
     Dates: start: 20240101, end: 20240103
  2. ALOE VERA LEAF [Concomitant]
     Active Substance: ALOE VERA LEAF

REACTIONS (1)
  - Tinnitus [None]

NARRATIVE: CASE EVENT DATE: 20240101
